FAERS Safety Report 26053919 (Version 1)
Quarter: 2025Q4

REPORT INFORMATION
  Report Type: Spontaneous
  Country: US (occurrence: US)
  Receive Date: 20251117
  Receipt Date: 20251117
  Transmission Date: 20260118
  Serious: No
  Sender: SANOFI AVENTIS
  Company Number: US-SA-2025SA341344

PATIENT
  Age: 55 Year
  Sex: Male
  Weight: 104.09 kg

DRUGS (7)
  1. DUPIXENT [Suspect]
     Active Substance: DUPILUMAB
     Indication: Dermatitis atopic
     Dosage: 300 MG, QOW
     Route: 058
     Dates: end: 202510
  2. FISH OIL [Concomitant]
     Active Substance: FISH OIL
  3. HERBALS\TURMERIC [Concomitant]
     Active Substance: HERBALS\TURMERIC
  4. TACROLIMUS [Concomitant]
     Active Substance: TACROLIMUS
  5. ZEPBOUND [Concomitant]
     Active Substance: TIRZEPATIDE
  6. EBGLYSS [Concomitant]
     Active Substance: LEBRIKIZUMAB-LBKZ
  7. COD LIVER OIL [Concomitant]
     Active Substance: COD LIVER OIL

REACTIONS (4)
  - Skin discolouration [Unknown]
  - Skin fissures [Recovering/Resolving]
  - Pruritus [Recovering/Resolving]
  - Therapeutic response decreased [Unknown]

NARRATIVE: CASE EVENT DATE: 20250101
